FAERS Safety Report 8262927-2 (Version None)
Quarter: 2012Q2

REPORT INFORMATION
  Report Type: 
  Country: None (occurrence: None)
  Receive Date: 20120405
  Receipt Date: 20120327
  Transmission Date: 20120825
  Serious: Yes (Other)
  Sender: FDA-Public Use
  Company Number: KE-GLAXOSMITHKLINE-B0793012A

PATIENT
  Age: 2 Year
  Sex: Male
  Weight: 10.7 kg

DRUGS (2)
  1. MOTILIUM [Concomitant]
     Indication: VOMITING
     Dosage: 15ML PER DAY
     Route: 048
     Dates: start: 20120229
  2. CEFUROXIME [Suspect]
     Indication: PYREXIA
     Dosage: 500MG PER DAY
     Route: 065
     Dates: start: 20120229, end: 20120301

REACTIONS (4)
  - PYREXIA [None]
  - DRUG INEFFECTIVE [None]
  - PRODUCT QUALITY ISSUE [None]
  - VOMITING [None]
